FAERS Safety Report 14702465 (Version 1)
Quarter: 2018Q2

REPORT INFORMATION
  Report Type: Spontaneous
  Country: GB (occurrence: GB)
  Receive Date: 20180401
  Receipt Date: 20180401
  Transmission Date: 20180711
  Serious: Yes (Disabling, Other)
  Sender: FDA-Public Use
  Company Number: GB-TEVA-2018-GB-877797

PATIENT
  Age: 32 Year
  Sex: Male
  Weight: 73 kg

DRUGS (6)
  1. NICOTINE. [Concomitant]
     Active Substance: NICOTINE
     Dosage: PLEASE READ INFORMATION LEAFLET.
  2. BECONASE AQ [Concomitant]
     Active Substance: BECLOMETHASONE DIPROPIONATE MONOHYDRATE
     Dosage: 4 DOSAGE FORMS DAILY; TWO SQUIRTS EACH NOSTRIL TWICE A DAY
     Route: 045
  3. HYDROCORTISONE. [Concomitant]
     Active Substance: HYDROCORTISONE
     Dosage: FOR SHINS
     Route: 065
  4. TOPIRAMATE. [Suspect]
     Active Substance: TOPIRAMATE
     Indication: HEADACHE
     Dosage: 50 MILLIGRAM DAILY;
     Route: 065
  5. COCODAMOL [Concomitant]
     Active Substance: ACETAMINOPHEN\CODEINE PHOSPHATE
     Indication: HEADACHE
     Dosage: 8MG/500MG, 1 OR 2 4 TIMES A DAY
  6. ZOPICLONE [Concomitant]
     Active Substance: ZOPICLONE
     Indication: SLEEP DISORDER
     Dosage: ONE AT NIGHT WHEN REQUIRED TO SLEEP

REACTIONS (5)
  - Dizziness [Recovered/Resolved]
  - Speech disorder [Unknown]
  - Malaise [Unknown]
  - Confusional state [Unknown]
  - Disturbance in attention [Unknown]
